FAERS Safety Report 8607271-6 (Version None)
Quarter: 2012Q3

REPORT INFORMATION
  Report Type: 
  Country: None (occurrence: None)
  Receive Date: 20120821
  Receipt Date: 20120810
  Transmission Date: 20120928
  Serious: Yes (Death, Other)
  Sender: FDA-Public Use
  Company Number: JP-GENZYME-THYM-1002010

PATIENT
  Sex: Male
  Weight: 75 kg

DRUGS (28)
  1. ENTECAVIR [Concomitant]
     Indication: APLASTIC ANAEMIA
     Dosage: UNK
     Route: 065
     Dates: start: 20090101, end: 20090901
  2. BIAPENEM [Concomitant]
     Indication: PROPHYLAXIS
     Dosage: UNK
     Route: 065
     Dates: start: 20090610, end: 20090623
  3. PREDNISOLONE [Concomitant]
     Indication: APLASTIC ANAEMIA
     Dosage: UNK
     Route: 065
     Dates: start: 20090408, end: 20090421
  4. DEXCHLORPHENIRAMINE MALEATE [Concomitant]
     Indication: PREMEDICATION
     Dosage: UNK
     Route: 065
     Dates: start: 20090401, end: 20090401
  5. SPIRONOLACTONE [Concomitant]
     Indication: PROPHYLAXIS
     Dosage: UNK
     Route: 065
     Dates: start: 20090821, end: 20090827
  6. THYMOGLOBULIN [Suspect]
     Indication: APLASTIC ANAEMIA
     Dosage: 175 MG, QD
     Route: 042
     Dates: start: 20090401, end: 20090405
  7. METHYLPREDNISOLONE SODIUM SUCCINATE [Concomitant]
     Indication: PREMEDICATION
     Dosage: UNK
     Route: 065
     Dates: start: 20090401, end: 20090405
  8. FILGRASTIM [Concomitant]
     Dosage: UNK
     Route: 065
     Dates: start: 20090721, end: 20090805
  9. SULBACTAM SODIUM CEFOPERAZONE SODIUM [Concomitant]
     Indication: PROPHYLAXIS
     Dosage: UNK
     Route: 065
     Dates: start: 20090826, end: 20090908
  10. ARBEKACIN SULFATE [Concomitant]
     Indication: PROPHYLAXIS
     Dosage: UNK
     Route: 065
     Dates: start: 20090912, end: 20090922
  11. TEPRENONE [Concomitant]
     Indication: APLASTIC ANAEMIA
     Dosage: UNK
     Route: 065
     Dates: start: 20090405, end: 20090918
  12. BIAPENEM [Concomitant]
     Dosage: UNK
     Route: 065
     Dates: start: 20090724, end: 20090806
  13. CEFOZOPRAN HYDROCHLORIDE [Concomitant]
     Indication: PROPHYLAXIS
     Dosage: UNK
     Route: 065
     Dates: start: 20090626, end: 20090709
  14. FLUCONAZOLE [Concomitant]
     Indication: PROPHYLAXIS
     Dosage: UNK
     Route: 065
     Dates: start: 20090408, end: 20090921
  15. RABEPRAZOLE SODIUM [Concomitant]
     Indication: PROPHYLAXIS
     Dosage: UNK
     Route: 065
     Dates: start: 20090410, end: 20090921
  16. DEFERASIROX [Concomitant]
     Indication: APLASTIC ANAEMIA
     Dosage: UNK
     Route: 065
     Dates: start: 20090325, end: 20090918
  17. FILGRASTIM [Concomitant]
     Dosage: UNK
     Route: 065
     Dates: start: 20090825, end: 20090922
  18. BIAPENEM [Concomitant]
     Dosage: UNK
     Route: 065
     Dates: start: 20090911, end: 20090921
  19. AMINO ACIDS [Concomitant]
     Indication: APLASTIC ANAEMIA
     Dosage: UNK
     Route: 065
     Dates: start: 20090731, end: 20090804
  20. ENTECAVIR [Concomitant]
     Indication: ANTIVIRAL PROPHYLAXIS
     Dosage: UNK
     Route: 065
     Dates: start: 20090331, end: 20090402
  21. FILGRASTIM [Concomitant]
     Dosage: UNK
     Route: 065
     Dates: start: 20090526, end: 20090616
  22. PEPSIN TREATED HUMAN IMMUNOGLOBULIN [Concomitant]
     Indication: APLASTIC ANAEMIA
     Dosage: UNK
     Route: 065
     Dates: start: 20090704, end: 20090706
  23. SULFAMETHOPRIM [Concomitant]
     Indication: PROPHYLAXIS
     Dosage: UNK
     Route: 065
     Dates: start: 20090408, end: 20090921
  24. DEFERASIROX [Concomitant]
     Indication: IRON OVERLOAD
  25. FILGRASTIM [Concomitant]
     Indication: APLASTIC ANAEMIA
     Dosage: UNK
     Route: 065
     Dates: start: 20090406, end: 20090408
  26. FUROSEMIDE [Concomitant]
     Indication: PROPHYLAXIS
     Dosage: UNK
     Route: 065
     Dates: start: 20090821, end: 20090827
  27. CEFOZOPRAN HYDROCHLORIDE [Concomitant]
     Dosage: UNK
     Route: 065
     Dates: start: 20090807, end: 20090820
  28. ITRACONAZOLE [Concomitant]
     Indication: PROPHYLAXIS
     Dosage: UNK
     Route: 065
     Dates: start: 20090101, end: 20090715

REACTIONS (14)
  - ARRHYTHMIA [None]
  - HYPOKALAEMIA [None]
  - BLOOD CALCIUM DECREASED [None]
  - ATRIAL FIBRILLATION [None]
  - RENAL IMPAIRMENT [None]
  - ABDOMINAL PAIN UPPER [None]
  - CYTOMEGALOVIRUS INFECTION [None]
  - FACE OEDEMA [None]
  - RESPIRATORY DISORDER [None]
  - APLASTIC ANAEMIA [None]
  - OEDEMA PERIPHERAL [None]
  - PYREXIA [None]
  - PALPITATIONS [None]
  - THERAPEUTIC RESPONSE DECREASED [None]
